FAERS Safety Report 11264835 (Version 1)
Quarter: 2015Q3

REPORT INFORMATION
  Report Type: Spontaneous
  Country: JP (occurrence: JP)
  Receive Date: 20150713
  Receipt Date: 20150713
  Transmission Date: 20151125
  Serious: Yes (Death)
  Sender: FDA-Public Use
  Company Number: JP-BAYER-2015-370057

PATIENT
  Sex: Female
  Weight: 63.39 kg

DRUGS (1)
  1. NEXAVAR [Suspect]
     Active Substance: SORAFENIB
     Indication: HEPATOCELLULAR CARCINOMA
     Dosage: 800 MG, QD
     Route: 048
     Dates: start: 201203

REACTIONS (6)
  - Pulmonary embolism [Fatal]
  - Hypoxia [Fatal]
  - Abdominal pain upper [None]
  - Tumour embolism [Fatal]
  - Dyspnoea [Fatal]
  - Blood pressure systolic increased [None]

NARRATIVE: CASE EVENT DATE: 2012
